FAERS Safety Report 8067733-X (Version None)
Quarter: 2012Q1

REPORT INFORMATION
  Report Type: 
  Country: None (occurrence: None)
  Receive Date: 20120124
  Receipt Date: 20120112
  Transmission Date: 20120608
  Serious: Yes (Hospitalization)
  Sender: FDA-Public Use
  Company Number: BR-MEDIMMUNE-MEDI-0013126

PATIENT
  Sex: Male
  Weight: 11.2 kg

DRUGS (5)
  1. PNEUMONIA VACCINE [Concomitant]
     Dates: start: 20110601, end: 20110601
  2. SYNAGIS [Suspect]
     Dates: start: 20110501, end: 20110801
  3. NALDONE [Concomitant]
  4. SYNAGIS [Suspect]
     Indication: CARDIAC DISORDER
     Dates: start: 20100428, end: 20100802
  5. CAPTOPRIL [Concomitant]
     Route: 048
     Dates: start: 20091208

REACTIONS (6)
  - COUGH [None]
  - BRONCHIOLITIS [None]
  - PNEUMONIA [None]
  - INFLUENZA [None]
  - WHEEZING [None]
  - RHINORRHOEA [None]
